FAERS Safety Report 11080408 (Version 2)
Quarter: 2015Q2

REPORT INFORMATION
  Report Type: Report from Study
  Country: US (occurrence: US)
  Receive Date: 20150430
  Receipt Date: 20150505
  Transmission Date: 20150821
  Serious: Yes (Other)
  Sender: FDA-Public Use
  Company Number: US-009507513-1504USA023148

PATIENT
  Age: 83 Year

DRUGS (3)
  1. VELCADE [Suspect]
     Active Substance: BORTEZOMIB
     Indication: PLASMA CELL MYELOMA
     Dosage: 1.3 MG/M2, WEEKLY X3, 1 WEEK OFF
     Route: 042
     Dates: start: 20110329
  2. DECADRON [Suspect]
     Active Substance: DEXAMETHASONE
     Indication: PLASMA CELL MYELOMA
     Dosage: 10 MG, WEEKLY X3, 1 WEEK OFF
     Route: 042
     Dates: start: 20110329
  3. DEXAMETHASONE. [Suspect]
     Active Substance: DEXAMETHASONE
     Indication: PLASMA CELL MYELOMA
     Dosage: 40 MG, QW
     Route: 048
     Dates: start: 20110329

REACTIONS (2)
  - Pneumonia [Unknown]
  - Hyponatraemia [Unknown]

NARRATIVE: CASE EVENT DATE: 20131030
